FAERS Safety Report 5671399-3 (Version None)
Quarter: 2008Q1

REPORT INFORMATION
  Report Type: 
  Country: None (occurrence: None)
  Receive Date: 20080313
  Receipt Date: 20080228
  Transmission Date: 20080703
  Serious: Yes (Death, Hospitalization)
  Sender: FDA-Public Use
  Company Number: ENC200700190

PATIENT
  Age: 57 Year
  Sex: Male

DRUGS (5)
  1. ARGATROBAN [Suspect]
     Indication: LATERAL MEDULLARY SYNDROME
     Dosage: 10 MG, INTRAVENOUS
     Route: 042
     Dates: start: 20070705, end: 20070705
  2. RADICUT(EDARAVONE) [Suspect]
     Indication: CEREBRAL INFARCTION
     Dosage: 30 MG, INTRAVENOUS
     Route: 042
     Dates: start: 20070705, end: 20070705
  3. VEEN-F (CALCIUM CHLORIDE ANHYDROUS, MAGNESIUM CHLORIDE ANHYDROUS, POTA [Concomitant]
  4. . [Concomitant]
  5. , [Concomitant]

REACTIONS (3)
  - BRAIN STEM INFARCTION [None]
  - COMA [None]
  - SUBARACHNOID HAEMORRHAGE [None]
